FAERS Safety Report 9822526 (Version 3)
Quarter: 2014Q1

REPORT INFORMATION
  Report Type: Spontaneous
  Country: GB (occurrence: GB)
  Receive Date: 20140116
  Receipt Date: 20140131
  Transmission Date: 20141002
  Serious: Yes (Other)
  Sender: FDA-Public Use
  Company Number: GB-BRISTOL-MYERS SQUIBB COMPANY-19803055

PATIENT
  Age: 39 Year
  Sex: Male

DRUGS (4)
  1. SUSTIVA TABS 600 MG [Suspect]
     Indication: HIV INFECTION
     Route: 048
     Dates: end: 201311
  2. BUPRENORPHINE HCL [Interacting]
  3. ATRIPLA [Suspect]
     Indication: HIV INFECTION
     Dosage: 600MG EFAV, 245MG TENOF,200MG EMTRICI AS A TRIPLER (3IN1 TAB)
     Route: 048
     Dates: end: 20131106
  4. DIAZEPAM [Concomitant]

REACTIONS (3)
  - Depression [Recovered/Resolved]
  - Drug level decreased [Unknown]
  - Drug interaction [Unknown]
